FAERS Safety Report 6502120-4 (Version None)
Quarter: 2009Q4

REPORT INFORMATION
  Report Type: 
  Country: None (occurrence: None)
  Receive Date: 20091216
  Receipt Date: 20091005
  Transmission Date: 20100525
  Serious: No
  Sender: FDA-Public Use
  Company Number: US-ABBOTT-09P-163-0601311-00

PATIENT
  Sex: Male
  Weight: 90.8 kg

DRUGS (9)
  1. TRILIPIX [Suspect]
     Indication: BLOOD CHOLESTEROL INCREASED
     Dates: start: 20090301, end: 20090930
  2. TRILIPIX [Suspect]
     Indication: BLOOD TRIGLYCERIDES INCREASED
  3. TRILIPIX [Suspect]
     Indication: LOW DENSITY LIPOPROTEIN INCREASED
  4. TRILIPIX [Suspect]
     Indication: HIGH DENSITY LIPOPROTEIN DECREASED
  5. SYNTHROID [Concomitant]
     Indication: PITUITARY TUMOUR
  6. SYNTHROID [Concomitant]
     Indication: BLOOD THYROID STIMULATING HORMONE DECREASED
  7. TESTOSTERONE [Concomitant]
     Indication: BLOOD TESTOSTERONE DECREASED
  8. FISH OIL [Concomitant]
     Indication: BLOOD CHOLESTEROL INCREASED
  9. ADDERALL 10 [Concomitant]
     Indication: DISTURBANCE IN ATTENTION

REACTIONS (5)
  - ARTHRALGIA [None]
  - HYPERSENSITIVITY [None]
  - LOCALISED OEDEMA [None]
  - MYALGIA [None]
  - RHINORRHOEA [None]
